FAERS Safety Report 26052275 (Version 1)
Quarter: 2025Q4

REPORT INFORMATION
  Report Type: Spontaneous
  Country: US (occurrence: US)
  Receive Date: 20251117
  Receipt Date: 20251117
  Transmission Date: 20260117
  Serious: No
  Sender: PHARMING GROUP
  Company Number: US-PHARMING-PHAUS2025001581

PATIENT

DRUGS (2)
  1. RUCONEST [Suspect]
     Active Substance: CONESTAT ALFA
     Indication: Hereditary angioedema
     Dosage: 4200 IU, TWICE WEEKLY
     Route: 042
     Dates: start: 202209
  2. TAKHZYRO [Concomitant]
     Active Substance: LANADELUMAB-FLYO
     Indication: Product used for unknown indication
     Dosage: UNK, EVERY 2 WEEKS

REACTIONS (2)
  - Condition aggravated [Unknown]
  - Intentional product use issue [Unknown]
